FAERS Safety Report 4588844-7 (Version None)
Quarter: 2005Q1

REPORT INFORMATION
  Report Type: 
  Country: None (occurrence: None)
  Receive Date: 20050222
  Receipt Date: 20050215
  Transmission Date: 20050727
  Serious: Yes (Hospitalization)
  Sender: FDA-Public Use
  Company Number: US-GLAXOSMITHKLINE-A0545583A

PATIENT
  Age: 75 Year
  Sex: Male
  Weight: 74.8 kg

DRUGS (5)
  1. DUTASTERIDE [Suspect]
     Indication: BENIGN PROSTATIC HYPERPLASIA
     Route: 048
     Dates: start: 20040519, end: 20050119
  2. TAMSULOSIN [Suspect]
     Indication: BENIGN PROSTATIC HYPERPLASIA
     Route: 048
  3. DILTIAZEM [Concomitant]
     Indication: SINUS RHYTHM
     Dosage: 360MG PER DAY
     Route: 048
     Dates: start: 19880101
  4. ISOSORBIDE [Concomitant]
     Indication: HEART RATE
     Dosage: 20MG PER DAY
     Route: 048
     Dates: start: 19880101
  5. ANAGRELIDE HCL [Concomitant]
     Dosage: 1MG PER DAY
     Route: 048
     Dates: start: 19880101

REACTIONS (2)
  - ATRIAL FIBRILLATION [None]
  - BLOOD PRESSURE FLUCTUATION [None]
